FAERS Safety Report 4970751-9 (Version None)
Quarter: 2006Q2

REPORT INFORMATION
  Report Type: 
  Country: None (occurrence: None)
  Receive Date: 20060406
  Receipt Date: 20060328
  Transmission Date: 20061013
  Serious: Yes (Hospitalization, Other)
  Sender: FDA-Public Use
  Company Number: HQWYE560428MAR06

PATIENT
  Age: 39 Year
  Sex: Female

DRUGS (10)
  1. RAPAMUNE [Suspect]
     Indication: PROPHYLAXIS AGAINST TRANSPLANT REJECTION
     Dosage: 5 MG 1X PER 1 DAY ORAL
     Route: 048
     Dates: start: 20030719, end: 20060308
  2. RAPAMUNE [Suspect]
     Indication: PROPHYLAXIS AGAINST TRANSPLANT REJECTION
     Dosage: 5 MG 1X PER 1 DAY ORAL
     Route: 048
     Dates: start: 20060317
  3. TACROLIMUS (TACROLIMUS, ) [Suspect]
     Indication: PROPHYLAXIS AGAINST TRANSPLANT REJECTION
     Dosage: 4 MG 1X PER 1 DAY ORAL
     Route: 048
     Dates: start: 20030719, end: 20060308
  4. TACROLIMUS (TACROLIMUS, ) [Suspect]
     Indication: PROPHYLAXIS AGAINST TRANSPLANT REJECTION
     Dosage: 4 MG 1X PER 1 DAY ORAL
     Route: 048
     Dates: start: 20060312
  5. ASPIRIN [Concomitant]
  6. ATORVASTATIN CALCIUM [Concomitant]
  7. ALLOPURINOL [Concomitant]
  8. ALENDRONATE SODIUM [Concomitant]
  9. CALCIUM (CALCIUM) [Concomitant]
  10. DIPOTASSIUM CLORAZEPATE (CLORAZEPATE DIPOTASSIUM) [Concomitant]

REACTIONS (4)
  - COMPLICATIONS OF TRANSPLANTED KIDNEY [None]
  - DIALYSIS [None]
  - IMMUNOSUPPRESSANT DRUG LEVEL INCREASED [None]
  - RENAL FAILURE [None]
